FAERS Safety Report 4621910-6 (Version None)
Quarter: 2005Q1

REPORT INFORMATION
  Report Type: 
  Country: None (occurrence: None)
  Receive Date: 20050329
  Receipt Date: 20050317
  Transmission Date: 20050727
  Serious: Yes (Hospitalization)
  Sender: FDA-Public Use
  Company Number: FR-GLAXOSMITHKLINE-B0375660A

PATIENT
  Age: 7 Day
  Sex: Female
  Weight: 3.3 kg

DRUGS (3)
  1. LAMICTAL [Suspect]
     Indication: EPILEPSY
     Dates: end: 20041211
  2. URBANYL [Suspect]
     Indication: EPILEPSY
     Dates: end: 20041211
  3. DEPAKENE [Suspect]
     Indication: EPILEPSY
     Dates: end: 20041211

REACTIONS (4)
  - CONGENITAL ANOMALY [None]
  - CONGENITAL CEREBROVASCULAR ANOMALY [None]
  - DRUG EXPOSURE DURING PREGNANCY [None]
  - VASCULAR CALCIFICATION [None]
